FAERS Safety Report 6257681-X (Version None)
Quarter: 2009Q3

REPORT INFORMATION
  Report Type: 
  Country: None (occurrence: None)
  Receive Date: 20090706
  Receipt Date: 20090626
  Transmission Date: 20100115
  Serious: Yes (Hospitalization)
  Sender: FDA-Public Use
  Company Number: US-AVENTIS-200915655US

PATIENT
  Sex: Male

DRUGS (4)
  1. LANTUS [Suspect]
     Route: 058
     Dates: start: 20090507
  2. ATENOLOL [Concomitant]
     Dosage: DOSE: UNK
  3. ISOSORBIDE [Concomitant]
     Dosage: DOSE: UNK
  4. LISINOPRIL [Concomitant]
     Dosage: DOSE: UNK

REACTIONS (2)
  - CARDIAC DISORDER [None]
  - PNEUMONIA [None]
